FAERS Safety Report 5281910-2 (Version None)
Quarter: 2007Q1

REPORT INFORMATION
  Report Type: 
  Country: None (occurrence: None)
  Receive Date: 20070330
  Receipt Date: 20070323
  Transmission Date: 20070707
  Serious: Yes (Death, Other)
  Sender: FDA-Public Use
  Company Number: DE-ELI_LILLY_AND_COMPANY-DE200703003560

PATIENT
  Age: 62 Year
  Sex: Female

DRUGS (11)
  1. ZYPREXA [Suspect]
     Indication: MAJOR DEPRESSION
     Route: 048
     Dates: start: 20040101, end: 20060626
  2. ZYPREXA [Suspect]
     Dosage: 5 MG, DAILY (1/D)
     Route: 048
     Dates: start: 20060627, end: 20060627
  3. ZYPREXA [Suspect]
     Dosage: 7.5 MG, DAILY (1/D)
     Route: 048
     Dates: start: 20060628, end: 20060705
  4. ZYPREXA [Suspect]
     Dosage: 10 MG, DAILY (1/D)
     Route: 048
     Dates: start: 20060706, end: 20060709
  5. ZYPREXA [Suspect]
     Dosage: 5 MG, DAILY (1/D)
     Route: 048
     Dates: start: 20060710, end: 20060710
  6. AMITRIPTYLINE HCL [Concomitant]
     Dosage: UNK, DAILY (1/D)
     Route: 048
     Dates: start: 20050901, end: 20060626
  7. AMITRIPTYLINE HCL [Concomitant]
     Dosage: 125 MG, DAILY (1/D)
     Route: 048
     Dates: start: 20060627, end: 20060627
  8. AMITRIPTYLINE HCL [Concomitant]
     Dosage: 100 MG, DAILY (1/D)
     Route: 048
     Dates: start: 20060628, end: 20060628
  9. AMITRIPTYLINE HCL [Concomitant]
     Dosage: 75 MG, DAILY (1/D)
     Route: 048
     Dates: start: 20060629, end: 20060702
  10. AMITRIPTYLINE HCL [Concomitant]
     Dosage: 25 MG, DAILY (1/D)
     Route: 048
     Dates: start: 20060703, end: 20060704
  11. MELPERON [Concomitant]
     Dosage: 25 MG, DAILY (1/D)
     Route: 048
     Dates: start: 20060626, end: 20060702

REACTIONS (10)
  - CHRONIC OBSTRUCTIVE PULMONARY DISEASE [None]
  - DEHYDRATION [None]
  - GASTROINTESTINAL HAEMORRHAGE [None]
  - HIATUS HERNIA [None]
  - NEUROLEPTIC MALIGNANT SYNDROME [None]
  - PNEUMONIA ASPIRATION [None]
  - REFLUX OESOPHAGITIS [None]
  - SEPSIS [None]
  - STUPOR [None]
  - URINARY TRACT INFECTION ENTEROCOCCAL [None]
